APPROVED DRUG PRODUCT: HYDREA
Active Ingredient: HYDROXYUREA
Strength: 500MG
Dosage Form/Route: CAPSULE;ORAL
Application: N016295 | Product #001 | TE Code: AB
Applicant: WAYLIS THERAPEUTICS LLC
Approved: Approved Prior to Jan 1, 1982 | RLD: Yes | RS: Yes | Type: RX